FAERS Safety Report 8635504 (Version 3)
Quarter: 2012Q4

REPORT INFORMATION
  Report Type: Report from Study
  Country: BR (occurrence: BR)
  Receive Date: 20120626
  Receipt Date: 20121128
  Transmission Date: 20130627
  Serious: Yes (Hospitalization, Other)
  Sender: FDA-Public Use
  Company Number: BR-ROCHE-773587

PATIENT
  Sex: Female
  Weight: 60 kg

DRUGS (12)
  1. RITUXIMAB [Suspect]
     Indication: RHEUMATOID ARTHRITIS
     Route: 042
  2. RITUXIMAB [Suspect]
     Route: 065
  3. RITUXIMAB [Suspect]
     Route: 065
  4. DIPYRONE [Concomitant]
     Indication: PAIN
     Route: 065
  5. FLUOXETINE [Concomitant]
     Route: 065
  6. OMEPRAZOLE [Concomitant]
  7. CALCIUM CARBONATE [Concomitant]
     Route: 065
  8. PREDNISONE [Concomitant]
     Dosage: DOSE: 5MG, FREQUENCY: 1.5MG/DAY
     Route: 065
  9. SIROLIMUS [Concomitant]
     Route: 065
  10. AMITRIPTYLINE [Concomitant]
  11. HYDROXIN [Concomitant]
  12. CALCIUM [Concomitant]

REACTIONS (16)
  - Kidney infection [Recovering/Resolving]
  - Arthropathy [Recovered/Resolved]
  - Osteoarthritis [Not Recovered/Not Resolved]
  - Hypersensitivity [Recovering/Resolving]
  - Pain [Recovering/Resolving]
  - Insomnia [Recovering/Resolving]
  - Sensory disturbance [Unknown]
  - Gait disturbance [Recovering/Resolving]
  - Hypertension [Unknown]
  - Ill-defined disorder [Recovering/Resolving]
  - Lung infection [Not Recovered/Not Resolved]
  - Nasopharyngitis [Not Recovered/Not Resolved]
  - Ear pain [Not Recovered/Not Resolved]
  - Chronic sinusitis [Not Recovered/Not Resolved]
  - Influenza [Not Recovered/Not Resolved]
  - Pain in extremity [Not Recovered/Not Resolved]
